FAERS Safety Report 6896653-9 (Version None)
Quarter: 2010Q3

REPORT INFORMATION
  Report Type: 
  Country: None (occurrence: None)
  Receive Date: 20100802
  Receipt Date: 20070110
  Transmission Date: 20110219
  Serious: Yes (Other)
  Sender: FDA-Public Use
  Company Number: US-PFIZER INC-2007004087

PATIENT
  Sex: Female
  Weight: 81.6 kg

DRUGS (10)
  1. LYRICA [Suspect]
     Indication: LUMBAR RADICULOPATHY
     Dates: start: 20061208, end: 20070110
  2. HUMALOG [Concomitant]
  3. LANTUS [Concomitant]
  4. LIPITOR [Concomitant]
  5. TOPROL-XL [Concomitant]
  6. GEMFIBROZIL [Concomitant]
  7. PRILOSEC [Concomitant]
  8. LASIX [Concomitant]
  9. ZOLOFT [Concomitant]
  10. DIOVAN HCT [Concomitant]

REACTIONS (4)
  - DIZZINESS [None]
  - DYSPNOEA [None]
  - OEDEMA PERIPHERAL [None]
  - WEIGHT INCREASED [None]
